FAERS Safety Report 22619444 (Version 1)
Quarter: 2023Q2

REPORT INFORMATION
  Report Type: Spontaneous
  Country: US (occurrence: None)
  Receive Date: 20230618
  Receipt Date: 20230618
  Transmission Date: 20230722
  Serious: Yes (Hospitalization)
  Sender: FDA-Public Use
  Company Number: None

PATIENT
  Age: 53 Year
  Sex: Male
  Weight: 168.75 kg

DRUGS (14)
  1. PAXLOVID [Suspect]
     Active Substance: NIRMATRELVIR\RITONAVIR
     Indication: COVID-19
     Dosage: OTHER QUANTITY : 30 TABLET(S);?FREQUENCY : EVERY 12 HOURS;?
     Route: 048
     Dates: start: 20220522, end: 20230523
  2. ELIQUIS [Concomitant]
     Active Substance: APIXABAN
  3. VALSARTAN [Concomitant]
     Active Substance: VALSARTAN
  4. AMLODIPINE [Concomitant]
  5. HYDROCHLOROTHIAZIDE [Concomitant]
     Active Substance: HYDROCHLOROTHIAZIDE
  6. NURTEC ODT [Concomitant]
     Active Substance: RIMEGEPANT SULFATE
  7. SERTRALINE [Concomitant]
     Active Substance: SERTRALINE HYDROCHLORIDE
  8. GABAPENTIN [Concomitant]
  9. CLONAZEPAM [Concomitant]
     Active Substance: CLONAZEPAM
  10. TRAZODONE [Concomitant]
  11. LORAZEPAM [Concomitant]
  12. HYDRALAZINE [Concomitant]
  13. MAGNESIUM OXIDE [Concomitant]
     Active Substance: MAGNESIUM OXIDE
  14. IRON [Concomitant]

REACTIONS (3)
  - Anxiety [None]
  - Insomnia [None]
  - Condition aggravated [None]

NARRATIVE: CASE EVENT DATE: 20220530
